FAERS Safety Report 19014150 (Version 2)
Quarter: 2021Q2

REPORT INFORMATION
  Report Type: Report from Study
  Country: AR (occurrence: AR)
  Receive Date: 20210316
  Receipt Date: 20210401
  Transmission Date: 20210717
  Serious: Yes (Other)
  Sender: FDA-Public Use
  Company Number: NVSC2021AR056164

PATIENT
  Age: 63 Year
  Sex: Male

DRUGS (5)
  1. DIOVAN D [Suspect]
     Active Substance: HYDROCHLOROTHIAZIDE\VALSARTAN
     Indication: HYPERTENSION
     Dosage: 1 DF (160/25 MG), QD, A YEAR AGO
     Route: 065
     Dates: end: 202010
  2. DIOVAN D [Suspect]
     Active Substance: HYDROCHLOROTHIAZIDE\VALSARTAN
     Dosage: 1 DF, QD (160/12.5 MG)
     Route: 048
     Dates: start: 2020
  3. DBI AP FORTE [Concomitant]
     Indication: PRODUCT USED FOR UNKNOWN INDICATION
     Dosage: 1 G, BID (IN LUNCH AND DINNER)
     Route: 065
  4. DIOVAN D [Suspect]
     Active Substance: HYDROCHLOROTHIAZIDE\VALSARTAN
     Dosage: 1 DF, QD (160/25 MG)
     Route: 048
  5. DIOVAN D [Suspect]
     Active Substance: HYDROCHLOROTHIAZIDE\VALSARTAN
     Dosage: 1 DF, QD (160/25 MG)
     Route: 048
     Dates: start: 202012

REACTIONS (4)
  - Diabetes mellitus [Unknown]
  - Intercepted product selection error [Unknown]
  - Product prescribing error [Unknown]
  - Memory impairment [Unknown]

NARRATIVE: CASE EVENT DATE: 202010
